FAERS Safety Report 14699474 (Version 1)
Quarter: 2018Q1

REPORT INFORMATION
  Report Type: Spontaneous
  Country: DE (occurrence: DE)
  Receive Date: 20180330
  Receipt Date: 20180330
  Transmission Date: 20180509
  Serious: Yes (Death, Hospitalization, Other)
  Sender: FDA-Public Use
  Company Number: DE-NOVOPROD-592328

PATIENT
  Age: 62 Year
  Sex: Male

DRUGS (10)
  1. OFEV [Suspect]
     Active Substance: NINTEDANIB
     Dosage: 150 MG, QD
     Route: 048
     Dates: start: 20160901, end: 20160907
  2. OFEV [Suspect]
     Active Substance: NINTEDANIB
     Dosage: UNK
     Route: 048
  3. MARCUMAR [Concomitant]
     Active Substance: PHENPROCOUMON
     Indication: PULMONARY EMBOLISM
     Dosage: UNK
     Route: 065
  4. OFEV [Suspect]
     Active Substance: NINTEDANIB
     Dosage: 100 MG, QD
     Route: 048
     Dates: start: 20180205
  5. OFEV [Suspect]
     Active Substance: NINTEDANIB
     Indication: IDIOPATHIC PULMONARY FIBROSIS
     Dosage: 150 MG, BID
     Route: 048
     Dates: start: 20150901
  6. MARCUMAR [Concomitant]
     Active Substance: PHENPROCOUMON
     Indication: DEEP VEIN THROMBOSIS
     Dosage: UNK
     Route: 065
  7. ACTRAPHANE [Suspect]
     Active Substance: INSULIN HUMAN
     Indication: DIABETES MELLITUS
     Route: 065
  8. METFORMIN [Concomitant]
     Active Substance: METFORMIN HYDROCHLORIDE
     Indication: PRODUCT USED FOR UNKNOWN INDICATION
     Dosage: UNK
     Route: 065
  9. OFEV [Suspect]
     Active Substance: NINTEDANIB
     Dosage: 150 MG, BID
     Route: 048
     Dates: start: 20160201
  10. JANUMET [Suspect]
     Active Substance: METFORMIN HYDROCHLORIDE\SITAGLIPTIN PHOSPHATE
     Indication: DIABETES MELLITUS
     Dosage: UNK
     Route: 065

REACTIONS (10)
  - Intestinal ischaemia [Fatal]
  - Transplantation complication [Unknown]
  - Abdominal pain upper [Not Recovered/Not Resolved]
  - Gamma-glutamyltransferase increased [Unknown]
  - Blood test abnormal [Not Recovered/Not Resolved]
  - Infection [Recovered/Resolved with Sequelae]
  - Renal ischaemia [Unknown]
  - Multiple organ dysfunction syndrome [Fatal]
  - Acute hepatic failure [Fatal]
  - Lung transplant [Unknown]

NARRATIVE: CASE EVENT DATE: 20160901
